FAERS Safety Report 16677943 (Version 1)
Quarter: 2019Q3

REPORT INFORMATION
  Report Type: Spontaneous
  Country: US (occurrence: US)
  Receive Date: 20190807
  Receipt Date: 20190807
  Transmission Date: 20191004
  Serious: No
  Sender: FDA-Public Use
  Company Number: US-PFIZER INC-2019333593

PATIENT
  Age: 49 Year
  Sex: Male
  Weight: 129 kg

DRUGS (3)
  1. LYRICA [Suspect]
     Active Substance: PREGABALIN
     Dosage: 150 MG, 2X/DAY
  2. LYRICA [Suspect]
     Active Substance: PREGABALIN
     Indication: NEUROPATHY PERIPHERAL
     Dosage: UNK, 3X/DAY
  3. LYRICA [Suspect]
     Active Substance: PREGABALIN
     Dosage: 300 MG, 3X/DAY, (2 OF THE 75 MG AT THE 150 ONE EXTRA TIME OF THE DAY)

REACTIONS (5)
  - Product prescribing error [Unknown]
  - Mobility decreased [Recovering/Resolving]
  - Incorrect dosage administered [Unknown]
  - Pain in extremity [Recovering/Resolving]
  - Gait disturbance [Recovering/Resolving]
